FAERS Safety Report 16161237 (Version 1)
Quarter: 2019Q2

REPORT INFORMATION
  Report Type: Spontaneous
  Country: US (occurrence: US)
  Receive Date: 20190405
  Receipt Date: 20190405
  Transmission Date: 20190711
  Serious: No
  Sender: FDA-Public Use
  Company Number: US-ASTRAZENECA-2019SE39238

PATIENT
  Age: 801 Month
  Sex: Female
  Weight: 54.4 kg

DRUGS (2)
  1. SYMBICORT [Suspect]
     Active Substance: BUDESONIDE\FORMOTEROL FUMARATE DIHYDRATE
     Indication: DYSPNOEA
     Dosage: 80/4.5 MCG,TWO PUFFS,TWO TIMES A DAY
     Route: 055
     Dates: start: 201812, end: 201901
  2. ASTELIN GENERIC [Concomitant]
     Indication: ANTIALLERGIC THERAPY
     Route: 045
     Dates: start: 201901

REACTIONS (4)
  - Body height decreased [Unknown]
  - Drug ineffective [Unknown]
  - Off label use [Unknown]
  - Product use in unapproved indication [Unknown]

NARRATIVE: CASE EVENT DATE: 201812
